FAERS Safety Report 10381906 (Version 1)
Quarter: 2014Q1

REPORT INFORMATION
  Report Type: Spontaneous
  Country: US (occurrence: None)
  Receive Date: 20140306
  Receipt Date: 20140306
  Transmission Date: 20141002
  Serious: Yes (Other)
  Sender: FDA-Public Use
  Company Number: 163-21880-13104387

PATIENT
  Age: 62 Year
  Sex: Male
  Weight: 103.42 kg

DRUGS (4)
  1. REVLIMID [Suspect]
     Indication: PLASMA CELL MYELOMA
     Dosage: 21 IN 21 D
     Route: 048
     Dates: start: 20130930
  2. DEXAMETHASONE [Concomitant]
  3. OMEPRAZOLE [Concomitant]
  4. ASPIRIN (ACETYLSALICYLIC ACID) [Concomitant]

REACTIONS (4)
  - Protein total decreased [None]
  - Chest discomfort [None]
  - Somnolence [None]
  - Fatigue [None]
